FAERS Safety Report 9792980 (Version 2)
Quarter: 2014Q1

REPORT INFORMATION
  Report Type: Report from Study
  Country: FR (occurrence: FR)
  Receive Date: 20140102
  Receipt Date: 20140110
  Transmission Date: 20141002
  Serious: Yes (Hospitalization)
  Sender: FDA-Public Use
  Company Number: PHHO2013FR016720

PATIENT
  Sex: 0

DRUGS (3)
  1. AMN107 [Suspect]
     Indication: CHRONIC MYELOID LEUKAEMIA
     Dosage: 600 MG
     Route: 048
     Dates: start: 20131209, end: 20131217
  2. GLIVEC [Concomitant]
     Indication: CHRONIC MYELOID LEUKAEMIA
     Dosage: 400 MG DAILY
     Route: 048
  3. BENZODIAZEPINES [Concomitant]
     Indication: ANXIETY
     Dosage: 1.5 MG/DAY

REACTIONS (1)
  - Cardiac failure [Recovering/Resolving]
